FAERS Safety Report 9471251 (Version 1)
Quarter: 2013Q3

REPORT INFORMATION
  Report Type: Spontaneous
  Country: US (occurrence: US)
  Receive Date: 20130822
  Receipt Date: 20130822
  Transmission Date: 20140515
  Serious: Yes (Hospitalization)
  Sender: FDA-Public Use
  Company Number: US-ASTRAZENECA-2013SE63643

PATIENT
  Sex: Female

DRUGS (2)
  1. NEXIUM [Suspect]
     Route: 048
  2. PREDNISOLONE [Suspect]

REACTIONS (3)
  - Gastric ulcer haemorrhage [Unknown]
  - Confusional state [Unknown]
  - Abdominal pain upper [Unknown]
